FAERS Safety Report 14207960 (Version 3)
Quarter: 2024Q2

REPORT INFORMATION
  Report Type: Spontaneous
  Country: CZ (occurrence: CZ)
  Receive Date: 20171121
  Receipt Date: 20240422
  Transmission Date: 20240715
  Serious: Yes (Life-Threatening, Hospitalization, Other)
  Sender: FDA-Public Use
  Company Number: CZ-ACCORD-061354

PATIENT
  Age: 82 Year
  Sex: Female

DRUGS (31)
  1. LEVETIRACETAM [Suspect]
     Active Substance: LEVETIRACETAM
     Indication: Generalised tonic-clonic seizure
  2. DIAZEPAM [Suspect]
     Active Substance: DIAZEPAM
     Indication: Generalised tonic-clonic seizure
     Route: 042
  3. PHENYTOIN [Suspect]
     Active Substance: PHENYTOIN
     Indication: Generalised tonic-clonic seizure
     Route: 042
  4. VALPROATE [Suspect]
     Active Substance: VALPROIC ACID
     Indication: Generalised tonic-clonic seizure
  5. PROPOFOL [Suspect]
     Active Substance: PROPOFOL
     Indication: Generalised tonic-clonic seizure
  6. BETAXOLOL HYDROCHLORIDE [Concomitant]
     Active Substance: BETAXOLOL HYDROCHLORIDE
     Indication: Hypertension
  7. LERCANIDIPINE [Concomitant]
     Active Substance: LERCANIDIPINE
     Indication: Product used for unknown indication
  8. GLIQUIDONE [Concomitant]
     Active Substance: GLIQUIDONE
     Indication: Product used for unknown indication
  9. SIMVASTATIN [Concomitant]
     Active Substance: SIMVASTATIN
     Indication: Product used for unknown indication
  10. EUTHYROX [Concomitant]
     Active Substance: LEVOTHYROXINE SODIUM
     Indication: Hypothyroidism
  11. ALLOPURINOL [Concomitant]
     Active Substance: ALLOPURINOL
     Indication: Gout
     Route: 048
  12. RAMIPRIL [Concomitant]
     Active Substance: RAMIPRIL
     Indication: Product used for unknown indication
  13. ASPIRIN\GLYCINE [Concomitant]
     Active Substance: ASPIRIN\GLYCINE
     Indication: Product used for unknown indication
  14. MOXONIDINE [Concomitant]
     Active Substance: MOXONIDINE
     Indication: Hypertension
  15. IBUPROFEN [Concomitant]
     Active Substance: IBUPROFEN
     Indication: Pain
     Route: 048
  16. ACETAMINOPHEN [Concomitant]
     Active Substance: ACETAMINOPHEN
     Indication: Pain
     Route: 048
  17. METAMIZOLE [Concomitant]
     Active Substance: METAMIZOLE
     Indication: Pain
     Route: 048
  18. IBUPROFEN [Concomitant]
     Active Substance: IBUPROFEN
     Indication: Analgesic therapy
  19. ACETAMINOPHEN [Concomitant]
     Active Substance: ACETAMINOPHEN
     Indication: Analgesic therapy
  20. PHENYTOIN [Suspect]
     Active Substance: PHENYTOIN
     Indication: Partial seizures
     Route: 042
  21. PROPOFOL [Suspect]
     Active Substance: PROPOFOL
     Indication: Seizure
  22. GLIQUIDONE [Concomitant]
     Active Substance: GLIQUIDONE
     Indication: Product used for unknown indication
  23. LEVETIRACETAM [Suspect]
     Active Substance: LEVETIRACETAM
     Indication: Product used for unknown indication
  24. DIAZEPAM [Suspect]
     Active Substance: DIAZEPAM
     Indication: Partial seizures
     Route: 042
  25. DIAZEPAM [Suspect]
     Active Substance: DIAZEPAM
     Indication: Seizure
     Route: 042
  26. PHENYTOIN [Suspect]
     Active Substance: PHENYTOIN
     Indication: Status epilepticus
     Route: 042
  27. PROPOFOL [Suspect]
     Active Substance: PROPOFOL
     Indication: Clonic convulsion
  28. VALPROATE [Suspect]
     Active Substance: VALPROIC ACID
     Indication: Status epilepticus
  29. DIAZEPAM [Suspect]
     Active Substance: DIAZEPAM
     Indication: Hypertension
     Route: 042
  30. VALPROATE [Suspect]
     Active Substance: VALPROIC ACID
     Indication: Partial seizures
  31. LEVETIRACETAM [Suspect]
     Active Substance: LEVETIRACETAM
     Indication: Generalised tonic-clonic seizure
     Dosage: 3000 MG, QD

REACTIONS (2)
  - Pneumonia [Recovering/Resolving]
  - Drug ineffective [Unknown]
